FAERS Safety Report 9437166 (Version 3)
Quarter: 2014Q3

REPORT INFORMATION
  Report Type: Spontaneous
  Country: US (occurrence: US)
  Receive Date: 20130802
  Receipt Date: 20140722
  Transmission Date: 20150326
  Serious: Yes (Hospitalization, Other)
  Sender: FDA-Public Use
  Company Number: US-009507513-1307USA017152

PATIENT
  Sex: Female
  Weight: 97.51 kg

DRUGS (4)
  1. NUVARING [Suspect]
     Active Substance: ETHINYL ESTRADIOL\ETONOGESTREL
     Indication: POLYCYSTIC OVARIES
     Dosage: INSERT 1 RING FOR 3 WEEKS, REMOVE FOR 1 WEEK
     Route: 067
     Dates: start: 20061031, end: 20090607
  2. PROAIR HFA [Concomitant]
     Active Substance: ALBUTEROL SULFATE
     Indication: PRODUCT USED FOR UNKNOWN INDICATION
     Dosage: UNK
     Dates: start: 1980
  3. TOPAMAX [Concomitant]
     Active Substance: TOPIRAMATE
     Indication: PRODUCT USED FOR UNKNOWN INDICATION
     Dosage: UNK
     Dates: start: 1994
  4. SYMBICORT [Concomitant]
     Active Substance: BUDESONIDE\FORMOTEROL FUMARATE DIHYDRATE
     Indication: PRODUCT USED FOR UNKNOWN INDICATION
     Dosage: UNK
     Dates: start: 1980

REACTIONS (42)
  - Gastrooesophageal reflux disease [Unknown]
  - Endometrial ablation [Unknown]
  - Hyperlipidaemia [Unknown]
  - Deep vein thrombosis [Recovered/Resolved]
  - Coagulopathy [Unknown]
  - Migraine [Unknown]
  - Irritable bowel syndrome [Unknown]
  - Uterine polyp [Unknown]
  - Female sterilisation [Unknown]
  - Mole excision [Unknown]
  - Thyroid disorder [Unknown]
  - Congenital knee deformity [Unknown]
  - Gallbladder disorder [Unknown]
  - Raynaud^s phenomenon [Unknown]
  - Uterine polypectomy [Unknown]
  - Pulmonary embolism [Recovered/Resolved]
  - Road traffic accident [Unknown]
  - Postpartum depression [Unknown]
  - Polyp [Unknown]
  - Hypertension [Unknown]
  - Psoriasis [Unknown]
  - Oesophagogastric fundoplasty [Unknown]
  - Joint injury [Unknown]
  - Fall [Unknown]
  - Nephrolithiasis [Unknown]
  - Pulmonary embolism [Unknown]
  - Acne [Unknown]
  - Spinal pain [Unknown]
  - Sinus disorder [Unknown]
  - Oedema [Unknown]
  - Thrombophlebitis superficial [Unknown]
  - Osteoarthritis [Unknown]
  - Knee operation [Unknown]
  - Musculoskeletal pain [Unknown]
  - Blood disorder [Unknown]
  - Off label use [Recovered/Resolved]
  - Sinus operation [Unknown]
  - Benign neoplasm of thyroid gland [Unknown]
  - Thyroidectomy [Unknown]
  - Bronchitis [Unknown]
  - Urinary tract infection [Unknown]
  - Diabetes mellitus [Unknown]

NARRATIVE: CASE EVENT DATE: 2006
